FAERS Safety Report 5914981-8 (Version None)
Quarter: 2008Q4

REPORT INFORMATION
  Report Type: 
  Country: None (occurrence: None)
  Receive Date: 20081010
  Receipt Date: 20081002
  Transmission Date: 20090506
  Serious: Yes (Death)
  Sender: FDA-Public Use
  Company Number: JP-GENENTECH-269115

PATIENT
  Age: 74 Year
  Sex: Male

DRUGS (5)
  1. RITUXAN [Suspect]
     Indication: RENAL TRANSPLANT
     Dosage: 375 MG/M2, SINGLE
     Route: 065
  2. CELLCEPT [Concomitant]
     Indication: RENAL TRANSPLANT
     Dosage: 1000 MG, QD
  3. SIMULECT [Concomitant]
     Indication: RENAL TRANSPLANT
  4. PROGRAF [Concomitant]
     Indication: IMMUNOSUPPRESSION
  5. CELLCEPT [Concomitant]
     Indication: IMMUNOSUPPRESSANT DRUG THERAPY

REACTIONS (2)
  - ENCEPHALITIS [None]
  - MYELITIS [None]
